FAERS Safety Report 4997846-8 (Version None)
Quarter: 2006Q2

REPORT INFORMATION
  Report Type: 
  Country: None (occurrence: None)
  Receive Date: 20060510
  Receipt Date: 20060503
  Transmission Date: 20061013
  Serious: Yes (Other)
  Sender: FDA-Public Use
  Company Number: LU-JNJFOC-20060500274

PATIENT
  Sex: Male
  Weight: 80 kg

DRUGS (3)
  1. TOPAMAX [Suspect]
     Route: 065
  2. DEPAKENE [Concomitant]
     Indication: EPILEPSY
  3. EMCONCOR [Concomitant]
     Indication: HYPERTENSION
     Dosage: DRUG STARTED YEARS AGO

REACTIONS (1)
  - COLITIS [None]
